FAERS Safety Report 7997586-7 (Version None)
Quarter: 2011Q4

REPORT INFORMATION
  Report Type: 
  Country: None (occurrence: None)
  Receive Date: 20111221
  Receipt Date: 20111209
  Transmission Date: 20120403
  Serious: Yes (Other)
  Sender: FDA-Public Use
  Company Number: SG-ROCHE-1023685

PATIENT
  Age: 48 Year
  Sex: Male

DRUGS (1)
  1. ALTEPLASE [Suspect]
     Indication: CEREBROVASCULAR ACCIDENT
     Route: 042

REACTIONS (2)
  - CEREBRAL ARTERY EMBOLISM [None]
  - CAROTID ARTERY THROMBOSIS [None]
